FAERS Safety Report 15363754 (Version 1)
Quarter: 2018Q3

REPORT INFORMATION
  Report Type: Spontaneous
  Country: US (occurrence: US)
  Receive Date: 20180908
  Receipt Date: 20180908
  Transmission Date: 20181010
  Serious: No
  Sender: FDA-Public Use
  Company Number: US-009507513-1611USA014153

PATIENT
  Age: 20 Year
  Sex: Female

DRUGS (4)
  1. DARUNAVIR [Suspect]
     Active Substance: DARUNAVIR
     Dosage: 800 (UNIT NOT REPORTED), QD
     Route: 048
     Dates: start: 20151021
  2. EMTRICITABINE (+) TENOFOVIR DISOPROXIL FUMARATE [Suspect]
     Active Substance: EMTRICITABINE\TENOFOVIR DISOPROXIL
     Dosage: 500 (UNIT NOT REPORTED), QD
     Route: 048
     Dates: start: 20151014
  3. ISENTRESS [Suspect]
     Active Substance: RALTEGRAVIR POTASSIUM
     Dosage: 800 (UNIT NOT REPORTED), QD
     Route: 048
     Dates: start: 20151014, end: 20151118
  4. RITONAVIR. [Suspect]
     Active Substance: RITONAVIR
     Dosage: 100 (UNIT NOT REPORTED), QD
     Route: 048
     Dates: start: 20151021

REACTIONS (1)
  - Maternal exposure during pregnancy [Recovered/Resolved]
